FAERS Safety Report 7391577-5 (Version None)
Quarter: 2011Q2

REPORT INFORMATION
  Report Type: 
  Country: None (occurrence: None)
  Receive Date: 20110404
  Receipt Date: 20110323
  Transmission Date: 20111010
  Serious: Yes (Hospitalization)
  Sender: FDA-Public Use
  Company Number: PHHO2011DE05355

PATIENT
  Sex: Male
  Weight: 94 kg

DRUGS (7)
  1. COMPARATOR BORTEZOMIB [Suspect]
     Indication: MULTIPLE MYELOMA
  2. BLINDED LBH589 [Suspect]
     Indication: MULTIPLE MYELOMA
  3. BLINDED PLACEBO [Suspect]
     Indication: MULTIPLE MYELOMA
  4. BLINDED NO TREATMENT RECEIVED [Suspect]
     Indication: MULTIPLE MYELOMA
  5. VELCADE [Suspect]
     Indication: MULTIPLE MYELOMA
  6. COMPARATOR DEXAMETHASONE [Suspect]
     Indication: MULTIPLE MYELOMA
  7. BLINDED FORTECORTIN [Suspect]
     Indication: MULTIPLE MYELOMA

REACTIONS (1)
  - DYSPNOEA [None]
